FAERS Safety Report 24980759 (Version 1)
Quarter: 2025Q1

REPORT INFORMATION
  Report Type: Spontaneous
  Country: US (occurrence: US)
  Receive Date: 20250218
  Receipt Date: 20250218
  Transmission Date: 20250408
  Serious: No
  Sender: GRIFOLS
  Company Number: US-IGSA-BIG0032990

PATIENT
  Age: 47 Year
  Sex: Female
  Weight: 72.5 kg

DRUGS (5)
  1. XEMBIFY [Suspect]
     Active Substance: HUMAN IMMUNOGLOBULIN G
     Indication: Dermatomyositis
     Dosage: 6 GRAM, Q.WK.
     Route: 058
     Dates: start: 20250202, end: 20250202
  2. XEMBIFY [Suspect]
     Active Substance: HUMAN IMMUNOGLOBULIN G
     Indication: Off label use
     Dosage: 6 GRAM, Q.WK.
     Route: 058
     Dates: start: 20250202, end: 20250202
  3. XEMBIFY [Suspect]
     Active Substance: HUMAN IMMUNOGLOBULIN G
     Dosage: 6 GRAM, Q.WK.
     Route: 058
     Dates: start: 20250202, end: 20250202
  4. XEMBIFY [Suspect]
     Active Substance: HUMAN IMMUNOGLOBULIN G
     Dosage: 7 GRAM, Q.WK.
     Route: 058
     Dates: start: 20250202, end: 20250202
  5. XEMBIFY [Suspect]
     Active Substance: HUMAN IMMUNOGLOBULIN G
     Dosage: 7 GRAM, Q.WK.
     Route: 058
     Dates: start: 202410, end: 20250202

REACTIONS (9)
  - Infusion site erythema [Recovered/Resolved]
  - Infusion site urticaria [Recovering/Resolving]
  - Infusion site warmth [Recovering/Resolving]
  - Infusion site pruritus [Recovered/Resolved]
  - Infusion site pain [Recovering/Resolving]
  - Nausea [Recovering/Resolving]
  - Infusion site rash [Unknown]
  - Infusion site swelling [Unknown]
  - Infusion site nodule [Unknown]

NARRATIVE: CASE EVENT DATE: 20250202
